FAERS Safety Report 14277438 (Version 3)
Quarter: 2018Q3

REPORT INFORMATION
  Report Type: Spontaneous
  Country: DE (occurrence: DE)
  Receive Date: 20171212
  Receipt Date: 20180730
  Transmission Date: 20181010
  Serious: Yes (Hospitalization)
  Sender: FDA-Public Use
  Company Number: DE-TORRENT-00005074

PATIENT
  Age: 50 Year
  Sex: Male

DRUGS (4)
  1. ZYPREXA [Suspect]
     Active Substance: OLANZAPINE
     Indication: DEPRESSION
     Dosage: DAILY DOSE: 15 MG MILLIGRAM(S) EVERY DAY, CUMULATIVE DOSE 360 MG
     Route: 048
     Dates: start: 20130623, end: 20130716
  2. PROTHIPENDYL [Concomitant]
     Active Substance: PROTHIPENDYL
     Indication: INITIAL INSOMNIA
     Dosage: 80 MG, DAILY
  3. OLANZAPINE. [Suspect]
     Active Substance: OLANZAPINE
     Indication: MANIA
     Dosage: UNKNOWN
     Route: 065
  4. LEVOTHYROXINE SODIUM. [Concomitant]
     Active Substance: LEVOTHYROXINE SODIUM
     Indication: HYPOTHYROIDISM
     Dosage: DAILY DOSE: 50 G MICROGRAM(S) EVERY DAY
     Route: 048

REACTIONS (11)
  - Restlessness [Not Recovered/Not Resolved]
  - Hyperhidrosis [Unknown]
  - Bipolar disorder [Unknown]
  - Somnambulism [Recovered/Resolved]
  - Insomnia [Unknown]
  - Prescribed overdose [Unknown]
  - Sleep disorder [Recovered/Resolved]
  - Supraventricular extrasystoles [Unknown]
  - Disorientation [Recovered/Resolved]
  - Amnesia [Unknown]
  - Confusional state [Not Recovered/Not Resolved]

NARRATIVE: CASE EVENT DATE: 20130724
